FAERS Safety Report 4678502-2 (Version None)
Quarter: 2005Q2

REPORT INFORMATION
  Report Type: 
  Country: None (occurrence: None)
  Receive Date: 20050601
  Receipt Date: 20050521
  Transmission Date: 20051028
  Serious: Yes (Hospitalization)
  Sender: FDA-Public Use
  Company Number: US-JNJFOC-20050505979

PATIENT
  Age: 73 Year
  Sex: Female

DRUGS (11)
  1. NATRECOR [Suspect]
     Dosage: 2 MCG/KG BOLUS AND 0.01 MCG/KG/MIN INFUSION
     Route: 042
  2. ASPIRIN [Concomitant]
  3. ALTACE [Concomitant]
  4. ZOCOR [Concomitant]
  5. LASIX [Concomitant]
  6. SINGULAIR [Concomitant]
  7. TYLENOL (CAPLET) [Concomitant]
  8. NITROGLYCERIN [Concomitant]
  9. COREG [Concomitant]
  10. PREVACID [Concomitant]
  11. MICRO-K [Concomitant]

REACTIONS (1)
  - THROMBOCYTOPENIA [None]
